FAERS Safety Report 16965538 (Version 5)
Quarter: 2020Q2

REPORT INFORMATION
  Report Type: Report from Study
  Country: US (occurrence: US)
  Receive Date: 20191028
  Receipt Date: 20200618
  Transmission Date: 20200713
  Serious: Yes (Other)
  Sender: FDA-Public Use
  Company Number: NVSC2019US017338

PATIENT
  Sex: Male

DRUGS (1)
  1. GILENYA [Suspect]
     Active Substance: FINGOLIMOD HYDROCHLORIDE
     Indication: RELAPSING-REMITTING MULTIPLE SCLEROSIS
     Dosage: 0.5 MG, QD
     Route: 048
     Dates: start: 20070101

REACTIONS (5)
  - Pneumonitis [Recovered/Resolved]
  - Primary progressive multiple sclerosis [Unknown]
  - Paralysis [Recovered/Resolved]
  - Blindness unilateral [Recovered/Resolved]
  - Arthritis [Recovered/Resolved]
